FAERS Safety Report 7243372-5 (Version None)
Quarter: 2011Q1

REPORT INFORMATION
  Report Type: 
  Country: None (occurrence: None)
  Receive Date: 20110114
  Receipt Date: 20110110
  Transmission Date: 20110831
  Serious: No
  Sender: FDA-Public Use
  Company Number: USA/USA/10/0017028

PATIENT
  Age: 41 Year
  Sex: Female

DRUGS (7)
  1. NEURONTIN [Concomitant]
  2. SINGULAIR [Concomitant]
  3. ZOMIG [Concomitant]
  4. LAMOTRIGINE [Suspect]
     Indication: MIGRAINE
     Dosage: 200 MG, 1 IN 1 D, ORAL
     Route: 048
     Dates: start: 20100401
  5. WELLBUTRIN SR [Concomitant]
  6. ENJUVIA (ESTROGENS CONJUGATED) [Concomitant]
  7. EFFEXOR XR [Concomitant]

REACTIONS (5)
  - DRUG INEFFECTIVE [None]
  - IMPAIRED DRIVING ABILITY [None]
  - PRODUCT SUBSTITUTION ISSUE [None]
  - PERFORMANCE STATUS DECREASED [None]
  - SOMNOLENCE [None]
